FAERS Safety Report 18275779 (Version 1)
Quarter: 2020Q3

REPORT INFORMATION
  Report Type: Spontaneous
  Country: US (occurrence: US)
  Receive Date: 20200917
  Receipt Date: 20200917
  Transmission Date: 20201103
  Serious: No
  Sender: FDA-Public Use
  Company Number: US-AMGEN-USASP2020149681

PATIENT
  Age: 63 Year
  Sex: Female

DRUGS (2)
  1. MVASI [Suspect]
     Active Substance: BEVACIZUMAB-AWWB
     Indication: PRODUCT USED FOR UNKNOWN INDICATION
     Dosage: 1068 MILLIGRAM ( 2 VIALS X 400 MG +  3 VIALS X 100 MG)
     Route: 065
  2. MVASI [Suspect]
     Active Substance: BEVACIZUMAB-AWWB
     Dosage: UNK MILLIGRAM
     Route: 065

REACTIONS (1)
  - Protein urine [Unknown]

NARRATIVE: CASE EVENT DATE: 20200914
